FAERS Safety Report 8558537-X (Version None)
Quarter: 2012Q3

REPORT INFORMATION
  Report Type: 
  Country: None (occurrence: None)
  Receive Date: 20120801
  Receipt Date: 20080419
  Transmission Date: 20120928
  Serious: Yes (Other)
  Sender: FDA-Public Use
  Company Number: CO-PFIZER INC-2012185061

PATIENT
  Age: 62 Year
  Sex: Female

DRUGS (9)
  1. LIPITOR [Suspect]
     Indication: DYSLIPIDAEMIA
     Dosage: 1 DF, 1X/DAY
  2. NIMODIPINE [Concomitant]
     Dosage: 1 DF, 1X/DAY
  3. LOVASTATIN [Concomitant]
     Dosage: 1 DF, 1X/DAY
  4. METOPROLOL TARTRATE [Concomitant]
     Dosage: 1 DF, 2X/DAY
  5. ACETYLSALICYLIC ACID [Concomitant]
     Dosage: 1 DF, 1X/DAY
  6. OLMESARTAN MEDOXOMIL AND HYDROCHLOROTHIZIDE [Suspect]
     Indication: HYPERTENSION
     Dosage: 1 DF, 1X/DAY
  7. OLMESARTAN MEDOXOMIL [Suspect]
     Indication: HYPERTENSION
     Dosage: 1 DF, 1X/DAY
  8. HYDROCHLOROTHIAZIDE [Concomitant]
     Dosage: 1 DF, 1X/DAY
  9. AMLODIPINE [Concomitant]
     Dosage: 1 DF, 1X/DAY

REACTIONS (1)
  - HYPERTENSIVE EMERGENCY [None]
